FAERS Safety Report 10278642 (Version 4)
Quarter: 2015Q2

REPORT INFORMATION
  Report Type: Spontaneous
  Country: US (occurrence: US)
  Receive Date: 20140704
  Receipt Date: 20150626
  Transmission Date: 20150821
  Serious: Yes (Other)
  Sender: FDA-Public Use
  Company Number: US-UCBSA-122130

PATIENT
  Sex: Male
  Weight: 72.56 kg

DRUGS (7)
  1. KU-METHYLPHENIDATE HYDROCHLORIDE [Suspect]
     Active Substance: METHYLPHENIDATE HYDROCHLORIDE
     Indication: DYSLEXIA
  2. ADDERALL [Concomitant]
     Active Substance: AMPHETAMINE ASPARTATE\AMPHETAMINE SULFATE\DEXTROAMPHETAMINE SACCHARATE\DEXTROAMPHETAMINE SULFATE
  3. KU-METHYLPHENIDATE HYDROCHLORIDE [Suspect]
     Active Substance: METHYLPHENIDATE HYDROCHLORIDE
     Indication: ATTENTION DEFICIT/HYPERACTIVITY DISORDER
     Dosage: 36 MG, ONCE DAILY (QD)
     Dates: start: 201404, end: 201404
  4. ALBUTEROL SULFATE. [Concomitant]
     Active Substance: ALBUTEROL SULFATE
     Indication: ASTHMA
     Dosage: 2 PUFFS
  5. CLARITIN [Concomitant]
     Active Substance: LORATADINE
     Indication: HYPERSENSITIVITY
     Dosage: 10 MG, UNK
     Route: 048
  6. VITAMIN D [Concomitant]
     Active Substance: CHOLECALCIFEROL
     Indication: DEPRESSION
     Dosage: 1000 IU
  7. METHYLPHENIDATE [Concomitant]
     Active Substance: METHYLPHENIDATE

REACTIONS (10)
  - Crying [Recovered/Resolved]
  - Suicidal ideation [Recovered/Resolved]
  - Feeling guilty [Recovering/Resolving]
  - Major depression [Recovering/Resolving]
  - Priapism [Recovered/Resolved]
  - Anxiety [Recovering/Resolving]
  - Attention deficit/hyperactivity disorder [Recovered/Resolved]
  - Dyslexia [Recovering/Resolving]
  - Depressed mood [Recovering/Resolving]
  - Irritability [Recovered/Resolved]

NARRATIVE: CASE EVENT DATE: 2014
